FAERS Safety Report 11433660 (Version 1)
Quarter: 2015Q3

REPORT INFORMATION
  Report Type: Spontaneous
  Country: CA (occurrence: CA)
  Receive Date: 20150831
  Receipt Date: 20150831
  Transmission Date: 20151125
  Serious: Yes (Other)
  Sender: FDA-Public Use
  Company Number: CA-ROCHE-1627036

PATIENT
  Age: 40 Year
  Sex: Female

DRUGS (3)
  1. XOLAIR [Suspect]
     Active Substance: OMALIZUMAB
     Indication: ASTHMA
     Route: 058
     Dates: start: 20140612
  2. XOLAIR [Suspect]
     Active Substance: OMALIZUMAB
     Route: 058
     Dates: start: 20141220
  3. XOLAIR [Suspect]
     Active Substance: OMALIZUMAB
     Route: 058
     Dates: start: 20141223

REACTIONS (16)
  - Headache [Recovering/Resolving]
  - Influenza [Recovering/Resolving]
  - Dysphonia [Recovering/Resolving]
  - Sputum discoloured [Recovering/Resolving]
  - Musculoskeletal stiffness [Recovering/Resolving]
  - Sinusitis [Recovered/Resolved]
  - Myalgia [Recovering/Resolving]
  - Bronchitis [Recovering/Resolving]
  - Bronchospasm [Recovering/Resolving]
  - Pain [Recovering/Resolving]
  - Lymphadenopathy [Unknown]
  - Cough [Recovering/Resolving]
  - Nasal congestion [Recovering/Resolving]
  - Productive cough [Recovering/Resolving]
  - Pyrexia [Recovered/Resolved]
  - Bronchial disorder [Unknown]

NARRATIVE: CASE EVENT DATE: 20141220
